FAERS Safety Report 5585574-X (Version None)
Quarter: 2008Q1

REPORT INFORMATION
  Report Type: 
  Country: None (occurrence: None)
  Receive Date: 20080109
  Receipt Date: 20080103
  Transmission Date: 20080703
  Serious: Yes (Other)
  Sender: FDA-Public Use
  Company Number: B0400693A

PATIENT
  Sex: Female

DRUGS (2)
  1. SEROXAT [Suspect]
     Route: 065
     Dates: start: 20001124
  2. EFFEXOR [Concomitant]
     Dates: start: 19990409

REACTIONS (13)
  - AGGRESSION [None]
  - AGITATION [None]
  - DISORIENTATION [None]
  - DIZZINESS [None]
  - DRUG WITHDRAWAL SYNDROME [None]
  - ELECTRIC SHOCK [None]
  - EMOTIONAL DISTRESS [None]
  - MALAISE [None]
  - NIGHTMARE [None]
  - PARAESTHESIA [None]
  - SENSORY DISTURBANCE [None]
  - TEARFULNESS [None]
  - VERTIGO [None]
